FAERS Safety Report 6998755-5 (Version None)
Quarter: 2010Q3

REPORT INFORMATION
  Report Type: 
  Country: None (occurrence: None)
  Receive Date: 20100920
  Receipt Date: 20100511
  Transmission Date: 20110219
  Serious: No
  Sender: FDA-Public Use
  Company Number: US-ASTRAZENECA-2010SE21439

PATIENT
  Age: 60 Year
  Sex: Female
  Weight: 52.6 kg

DRUGS (2)
  1. SEROQUEL XR [Suspect]
     Indication: BIPOLAR DISORDER
     Route: 048
     Dates: start: 20100101, end: 20100211
  2. DEPAKOTE [Concomitant]

REACTIONS (5)
  - DRUG DOSE OMISSION [None]
  - INSOMNIA [None]
  - PALPITATIONS [None]
  - PARAESTHESIA [None]
  - TONIC CLONIC MOVEMENTS [None]
